FAERS Safety Report 18778383 (Version 3)
Quarter: 2021Q2

REPORT INFORMATION
  Report Type: Report from Study
  Country: US (occurrence: US)
  Receive Date: 20210123
  Receipt Date: 20210518
  Transmission Date: 20210717
  Serious: Yes (Hospitalization)
  Sender: FDA-Public Use
  Company Number: US-TAKEDA-2021TUS004390

PATIENT
  Age: 41 Year
  Sex: Female

DRUGS (12)
  1. TEDUGLUTIDE [Suspect]
     Active Substance: TEDUGLUTIDE
     Indication: INTESTINAL FISTULA
     Dosage: 2.25 MILLIGRAM, QD
     Route: 058
     Dates: start: 20200123, end: 20210412
  2. TEDUGLUTIDE [Suspect]
     Active Substance: TEDUGLUTIDE
     Indication: MALNUTRITION
     Dosage: 2.5 MILLIGRAM, QD
     Route: 058
     Dates: start: 20200124
  3. TEDUGLUTIDE [Suspect]
     Active Substance: TEDUGLUTIDE
     Indication: INTESTINAL FISTULA
     Dosage: 2.25 MILLIGRAM, QD
     Route: 058
     Dates: start: 20200123, end: 20210412
  4. TEDUGLUTIDE [Suspect]
     Active Substance: TEDUGLUTIDE
     Indication: INTESTINAL FISTULA
     Dosage: 2.25 MILLIGRAM, QD
     Route: 058
     Dates: start: 20200123, end: 20210412
  5. TEDUGLUTIDE [Suspect]
     Active Substance: TEDUGLUTIDE
     Indication: MALNUTRITION
     Dosage: 2.5 MILLIGRAM, QD
     Route: 058
     Dates: start: 20200124
  6. TEDUGLUTIDE [Suspect]
     Active Substance: TEDUGLUTIDE
     Indication: MALNUTRITION
     Dosage: 2.5 MILLIGRAM, QD
     Route: 058
     Dates: start: 20200124
  7. TEDUGLUTIDE [Suspect]
     Active Substance: TEDUGLUTIDE
     Indication: CROHN^S DISEASE
  8. TEDUGLUTIDE [Suspect]
     Active Substance: TEDUGLUTIDE
     Indication: MALNUTRITION
     Dosage: 2.5 MILLIGRAM, QD
     Route: 058
     Dates: start: 20200124
  9. TEDUGLUTIDE [Suspect]
     Active Substance: TEDUGLUTIDE
     Indication: INTESTINAL FISTULA
     Dosage: 2.25 MILLIGRAM, QD
     Route: 058
     Dates: start: 20200123, end: 20210412
  10. TEDUGLUTIDE [Suspect]
     Active Substance: TEDUGLUTIDE
     Indication: CROHN^S DISEASE
  11. TEDUGLUTIDE [Suspect]
     Active Substance: TEDUGLUTIDE
     Indication: CROHN^S DISEASE
  12. TEDUGLUTIDE [Suspect]
     Active Substance: TEDUGLUTIDE
     Indication: CROHN^S DISEASE

REACTIONS (3)
  - COVID-19 [Unknown]
  - Colonoscopy [Unknown]
  - Incorrect product administration duration [Unknown]

NARRATIVE: CASE EVENT DATE: 20210111
